FAERS Safety Report 4855542-1 (Version None)
Quarter: 2005Q4

REPORT INFORMATION
  Report Type: 
  Country: None (occurrence: None)
  Receive Date: 20051214
  Receipt Date: 20051201
  Transmission Date: 20060501
  Serious: Yes (Hospitalization)
  Sender: FDA-Public Use
  Company Number: HQWYE817702DEC05

PATIENT
  Sex: Female
  Weight: 6 kg

DRUGS (6)
  1. CORDARONE [Suspect]
     Indication: TRICUSPID VALVE DISEASE
     Dosage: 50 MG MONDAY AND THURSDAY; 25 MG TUESDAY, WEDNESDAY AND THURSDAY, ORAL
     Route: 048
     Dates: start: 20050201
  2. REGLAN [Concomitant]
  3. LASIX [Concomitant]
  4. DIGOXIN [Concomitant]
  5. VIAGRA [Concomitant]
  6. ZANTAC [Concomitant]

REACTIONS (3)
  - RETCHING [None]
  - URINARY TRACT INFECTION [None]
  - VOMITING [None]
